FAERS Safety Report 10072290 (Version 1)
Quarter: 2014Q2

REPORT INFORMATION
  Report Type: Report from Study
  Country: US (occurrence: US)
  Receive Date: 20140411
  Receipt Date: 20140411
  Transmission Date: 20141212
  Serious: Yes (Death)
  Sender: FDA-Public Use
  Company Number: US-ROCHE-1361723

PATIENT
  Age: 56 Year
  Sex: Female

DRUGS (8)
  1. CELLCEPT [Suspect]
     Indication: AUTOIMMUNE HEPATITIS
     Route: 048
     Dates: start: 201104
  2. CELLCEPT [Suspect]
     Dosage: 3 CAPSULE IN NIGHT AND 3 CAPSULE AT NIGHT
     Route: 048
     Dates: start: 20120123
  3. BACTRIM [Suspect]
     Indication: PRODUCT USED FOR UNKNOWN INDICATION
     Route: 065
  4. VALCYTE [Suspect]
     Indication: LIVER TRANSPLANT
     Route: 048
  5. PREDNISONE [Concomitant]
     Route: 048
  6. XIFAXAN [Concomitant]
     Route: 048
  7. ALDACTONE (UNITED STATES) [Concomitant]
     Route: 048
  8. LACTULOSE [Concomitant]
     Dosage: 10 GRAM/15ML
     Route: 065

REACTIONS (3)
  - Road traffic accident [Fatal]
  - Hepatomegaly [Unknown]
  - Hypersensitivity [Unknown]
